FAERS Safety Report 11068267 (Version 1)
Quarter: 2015Q2

REPORT INFORMATION
  Report Type: Spontaneous
  Country: US (occurrence: None)
  Receive Date: 20150424
  Receipt Date: 20150424
  Transmission Date: 20150821
  Serious: Yes (Disabling)
  Sender: FDA-Public Use
  Company Number: None

PATIENT
  Age: 50 Year
  Sex: Female
  Weight: 90.72 kg

DRUGS (4)
  1. NORTRIPTILINE [Concomitant]
  2. VENLAFAXINE ER 150 MG TEVA USA [Suspect]
     Active Substance: VENLAFAXINE HYDROCHLORIDE
     Indication: DEPRESSION
     Dosage: 1 PILL
     Route: 048
     Dates: start: 20130322, end: 20150420
  3. TOPAMAX [Concomitant]
     Active Substance: TOPIRAMATE
  4. RISPERDAL [Concomitant]
     Active Substance: RISPERIDONE

REACTIONS (8)
  - Drug dependence [None]
  - Weight increased [None]
  - Vomiting [None]
  - Headache [None]
  - Vertigo [None]
  - Paraesthesia [None]
  - Nausea [None]
  - Panic attack [None]

NARRATIVE: CASE EVENT DATE: 20150402
